FAERS Safety Report 10219319 (Version 2)
Quarter: 2014Q2

REPORT INFORMATION
  Report Type: Spontaneous
  Country: JP (occurrence: None)
  Receive Date: 20140603
  Receipt Date: 20140612
  Transmission Date: 20141212
  Serious: Yes (Other)
  Sender: FDA-Public Use
  Company Number: SP07877

PATIENT
  Age: 71 Year
  Sex: Male

DRUGS (6)
  1. MOVIPREP (SOLUTION) [Suspect]
     Indication: BOWEL PREPARATION
     Route: 048
     Dates: start: 20140519, end: 20140519
  2. ELIQUIS [Concomitant]
  3. MAINTATE [Concomitant]
  4. OLMETEC [Concomitant]
  5. NESINA [Concomitant]
  6. LAXOBERON [Concomitant]

REACTIONS (4)
  - Dizziness [None]
  - Transient ischaemic attack [None]
  - Cerebellar ataxia [None]
  - Cerebral infarction [None]
